FAERS Safety Report 15369942 (Version 1)
Quarter: 2018Q3

REPORT INFORMATION
  Report Type: Spontaneous
  Country: RO (occurrence: RO)
  Receive Date: 20180911
  Receipt Date: 20180911
  Transmission Date: 20181010
  Serious: Yes (Other)
  Sender: FDA-Public Use
  Company Number: RO-CELLTRION INC.-2018RO022287

PATIENT

DRUGS (2)
  1. INFLIXIMAB (UNKNOWN) [Suspect]
     Active Substance: INFLIXIMAB
     Indication: POLYCHONDRITIS
     Dosage: UNK
     Route: 041
  2. LEFLUNOMIDE. [Suspect]
     Active Substance: LEFLUNOMIDE
     Indication: POLYCHONDRITIS
     Dosage: 10 MG, DAILY
     Route: 065

REACTIONS (3)
  - Diarrhoea [Unknown]
  - Escherichia sepsis [Unknown]
  - Product use in unapproved indication [Unknown]
